FAERS Safety Report 8823559 (Version 1)
Quarter: 2012Q4

REPORT INFORMATION
  Report Type: 
  Country: GB (occurrence: GB)
  Receive Date: 20121003
  Receipt Date: 20121003
  Transmission Date: 20130627
  Serious: Yes (Congenital Anomaly)
  Sender: FDA-Public Use
  Company Number: GB-MYLANLABS-2012S1019825

PATIENT
  Age: 1 Day
  Sex: Male
  Weight: 4.1 kg

DRUGS (1)
  1. SERTRALINE [Suspect]
     Route: 064

REACTIONS (2)
  - Coloboma [Not Recovered/Not Resolved]
  - Exposure during pregnancy [Unknown]
